FAERS Safety Report 23502815 (Version 1)
Quarter: 2024Q1

REPORT INFORMATION
  Report Type: Spontaneous
  Country: US (occurrence: US)
  Receive Date: 20240208
  Receipt Date: 20240208
  Transmission Date: 20240410
  Serious: No
  Sender: FDA-Public Use
  Company Number: US-INTRA-CELLULAR THERAPIES, INC.-2023ICT01086

PATIENT
  Age: 22 Year
  Sex: Female
  Weight: 72.562 kg

DRUGS (1)
  1. CAPLYTA [Suspect]
     Active Substance: LUMATEPERONE
     Indication: Bipolar disorder
     Dosage: 21 MG, 1X/DAY
     Route: 048

REACTIONS (4)
  - Somnambulism [Recovered/Resolved]
  - Sleep talking [Unknown]
  - Agitation [Unknown]
  - Nightmare [Unknown]

NARRATIVE: CASE EVENT DATE: 20230801
